FAERS Safety Report 8955480 (Version 2)
Quarter: 2012Q4

REPORT INFORMATION
  Report Type: Report from Study
  Country: US (occurrence: US)
  Receive Date: 20121207
  Receipt Date: 20121220
  Transmission Date: 20130627
  Serious: Yes (Other)
  Sender: FDA-Public Use
  Company Number: US-US-EMD SERONO, INC.-7179582

PATIENT
  Sex: Female
  Weight: 82 kg

DRUGS (1)
  1. REBIF [Suspect]
     Indication: PRODUCT USED FOR UNKNOWN INDICATION
     Route: 058
     Dates: start: 20120425

REACTIONS (4)
  - Angle closure glaucoma [Recovering/Resolving]
  - Muscular weakness [Unknown]
  - Influenza like illness [Recovering/Resolving]
  - Injection site bruising [Recovering/Resolving]
